FAERS Safety Report 6147043-8 (Version None)
Quarter: 2009Q2

REPORT INFORMATION
  Report Type: 
  Country: None (occurrence: None)
  Receive Date: 20090403
  Receipt Date: 20090325
  Transmission Date: 20091009
  Serious: Yes (Hospitalization)
  Sender: FDA-Public Use
  Company Number: 2009SP006653

PATIENT
  Sex: Female

DRUGS (3)
  1. NASONEX [Suspect]
     Indication: SINUSITIS
     Dosage: QD;NAS
     Route: 045
  2. DIOVAN [Concomitant]
  3. SERETIDE [Concomitant]

REACTIONS (3)
  - DIZZINESS [None]
  - MALAISE [None]
  - VOMITING [None]
